FAERS Safety Report 12195318 (Version 3)
Quarter: 2017Q4

REPORT INFORMATION
  Report Type: Report from Study
  Country: None (occurrence: BR)
  Receive Date: 20160321
  Receipt Date: 20171106
  Transmission Date: 20180320
  Serious: Yes (Hospitalization, Other)
  Sender: FDA-Public Use
  Company Number: BR-ABBVIE-14K-020-1306045-00

PATIENT
  Age: 32 Year
  Sex: Female
  Weight: 59.5 kg

DRUGS (19)
  1. HUMIRA [Suspect]
     Active Substance: ADALIMUMAB
     Dosage: LOADING DOSE
     Route: 058
  2. PANTOPRAZOLE [Concomitant]
     Active Substance: PANTOPRAZOLE
     Indication: PROPHYLAXIS
  3. GLUTAMINE [Concomitant]
     Active Substance: GLUTAMINE
     Indication: IMMUNODEFICIENCY
     Dosage: FORM OF ADMINISTRATION: SACHET
     Dates: start: 20170629
  4. HUMIRA [Suspect]
     Active Substance: ADALIMUMAB
     Route: 058
     Dates: start: 20160523
  5. PANTOPRAZOLE [Concomitant]
     Active Substance: PANTOPRAZOLE
     Indication: GASTRIC DISORDER
     Dosage: IN FASTING, IN THE MORNING AND AT NIGHT
     Route: 048
     Dates: start: 2012
  6. SEROQUEL [Concomitant]
     Active Substance: QUETIAPINE FUMARATE
     Indication: SLEEP DISORDER
     Dosage: BEFORE SLEEP
     Route: 048
  7. LORATAMED [Concomitant]
     Active Substance: LORATADINE
     Indication: PRODUCT USED FOR UNKNOWN INDICATION
  8. HUMIRA [Suspect]
     Active Substance: ADALIMUMAB
     Dosage: MAINTENACE DOSE
     Route: 058
  9. PANTOZOL [Concomitant]
     Active Substance: PANTOPRAZOLE SODIUM
     Indication: GASTRITIS
     Route: 048
  10. NATURETTI [Concomitant]
     Active Substance: HERBALS
     Indication: CONSTIPATION
     Route: 048
  11. CERAZETTE [Concomitant]
     Active Substance: DESOGESTREL
     Indication: ENDOMETRIOSIS
     Route: 048
  12. VITAMIN D [Concomitant]
     Active Substance: CHOLECALCIFEROL
     Indication: VITAMIN D DEFICIENCY
     Route: 048
  13. ALPRAZOLAM. [Concomitant]
     Active Substance: ALPRAZOLAM
     Indication: INSOMNIA
     Route: 048
     Dates: start: 2011
  14. AVALOX [Concomitant]
     Active Substance: MOXIFLOXACIN HYDROCHLORIDE
     Indication: PRODUCT USED FOR UNKNOWN INDICATION
     Dosage: DURING HOSPITALIZATION
     Dates: start: 201410, end: 201410
  15. HUMIRA [Suspect]
     Active Substance: ADALIMUMAB
     Indication: CROHN^S DISEASE
     Dosage: LOADING DOSE
     Route: 058
     Dates: start: 20120522, end: 20120522
  16. HUMIRA [Suspect]
     Active Substance: ADALIMUMAB
     Dosage: LOADING DOSE
     Route: 058
  17. HUMIRA [Suspect]
     Active Substance: ADALIMUMAB
     Dosage: MAINTENANCE DOSE
     Route: 058
     Dates: start: 20140926
  18. PANTOZOL [Concomitant]
     Active Substance: PANTOPRAZOLE SODIUM
     Indication: GASTROOESOPHAGEAL REFLUX DISEASE
  19. AMITRIPTYLINE HYDROCHLORIDE. [Concomitant]
     Active Substance: AMITRIPTYLINE HYDROCHLORIDE
     Indication: FIBROMYALGIA

REACTIONS (7)
  - Musculoskeletal disorder [Not Recovered/Not Resolved]
  - Feeling hot [Not Recovered/Not Resolved]
  - Glucose tolerance impaired [Not Recovered/Not Resolved]
  - Lymphoedema [Not Recovered/Not Resolved]
  - Immunodeficiency [Unknown]
  - Pyrexia [Not Recovered/Not Resolved]
  - Lymphatic disorder [Unknown]

NARRATIVE: CASE EVENT DATE: 2014
